FAERS Safety Report 15385363 (Version 15)
Quarter: 2020Q1

REPORT INFORMATION
  Report Type: Spontaneous
  Country: CA (occurrence: CA)
  Receive Date: 20180914
  Receipt Date: 20200321
  Transmission Date: 20200409
  Serious: Yes (Other)
  Sender: FDA-Public Use
  Company Number: CA-CELLTRION INC.-2018CA022467

PATIENT

DRUGS (28)
  1. SALOFALK [AMINOSALICYLIC ACID] [Concomitant]
     Active Substance: AMINOSALICYLIC ACID
     Dosage: 2 G, DAILY
     Route: 054
  2. BUDESONIDE. [Concomitant]
     Active Substance: BUDESONIDE
     Dosage: UNK
     Dates: start: 201809
  3. INFLECTRA [Suspect]
     Active Substance: INFLIXIMAB-DYYB
     Dosage: 400 MG,  0, 2, 6, THEN EVERY 8 WEEKS)
     Route: 042
     Dates: start: 20180719, end: 2018
  4. CORTIFOAM [Concomitant]
     Active Substance: HYDROCORTISONE ACETATE
     Dosage: UNK
  5. INFLECTRA [Suspect]
     Active Substance: INFLIXIMAB-DYYB
     Dosage: 5 MG/KG, EVERY 8 WEEKS
  6. FENTANYL. [Concomitant]
     Active Substance: FENTANYL
     Indication: SIGMOIDOSCOPY
     Dosage: 100 UG, UNK
     Route: 042
     Dates: start: 20181119
  7. MIDAZOLAM. [Concomitant]
     Active Substance: MIDAZOLAM
     Dosage: 4 MG, SINGLE
     Route: 042
     Dates: start: 20190605, end: 20190605
  8. CALCIUM [Concomitant]
     Active Substance: CALCIUM
     Dosage: UNK UNK, 2X/DAY
  9. SALOFALK [AMINOSALICYLIC ACID] [Concomitant]
     Active Substance: AMINOSALICYLIC ACID
     Indication: COLITIS ULCERATIVE
     Dosage: 2 G, DAILY
     Route: 048
  10. 5-ASA [Concomitant]
     Active Substance: MESALAMINE
     Dosage: UNK
     Route: 054
  11. FENTANYL. [Concomitant]
     Active Substance: FENTANYL
     Dosage: 75 UG, SINGLE
     Route: 042
     Dates: start: 20190605, end: 20190605
  12. VITAMIN D [Concomitant]
     Active Substance: VITAMIN D NOS
     Dosage: 2000 IU, UNK
  13. INFLECTRA [Suspect]
     Active Substance: INFLIXIMAB-DYYB
     Dosage: 800 MG, EVERY 0, 2, 6 WEEKS, THEN EVERY 6 WEEKS
     Route: 042
     Dates: start: 20190201
  14. INFLECTRA [Suspect]
     Active Substance: INFLIXIMAB-DYYB
     Dosage: 800 MG, EVERY 0, 2, 6 WEEKS, THEN EVERY 6 WEEKS
     Route: 042
     Dates: start: 20190426
  15. CORTIMENT [Concomitant]
     Dosage: UNK
  16. INFLECTRA [Suspect]
     Active Substance: INFLIXIMAB-DYYB
     Indication: COLITIS ULCERATIVE
     Dosage: 400 MG, 0, 2, 6, THEN EVERY 8 WEEKS
     Route: 042
     Dates: start: 20180705
  17. INFLECTRA [Suspect]
     Active Substance: INFLIXIMAB-DYYB
     Dosage: 800 MG, EVERY 0, 2, 6 WEEKS, THEN EVERY 6 WEEKS
     Route: 042
     Dates: start: 20190315
  18. INFLECTRA [Suspect]
     Active Substance: INFLIXIMAB-DYYB
     Dosage: 800 MG, EVERY 0, 2, 6 WEEKS, THEN EVERY 6 WEEKS
     Route: 042
     Dates: start: 20190426
  19. INFLECTRA [Suspect]
     Active Substance: INFLIXIMAB-DYYB
     Dosage: 800 MG, EVERY 0, 2, 6 WEEKS, THEN EVERY 6 WEEKS
     Route: 042
     Dates: start: 20190607
  20. INFLECTRA [Suspect]
     Active Substance: INFLIXIMAB-DYYB
     Dosage: 800 MG, EVERY 0, 2, 6 WEEKS, THEN EVERY 6 WEEKS
     Route: 042
     Dates: start: 20190607
  21. INFLECTRA [Suspect]
     Active Substance: INFLIXIMAB-DYYB
     Dosage: 800 MG, EVERY 0, 2, 6 WEEKS, THEN EVERY 6 WEEKS
     Route: 042
     Dates: start: 20190607
  22. PREDNISONE. [Concomitant]
     Active Substance: PREDNISONE
     Dosage: 40 MG,
  23. INFLECTRA [Suspect]
     Active Substance: INFLIXIMAB-DYYB
     Dosage: 800 MG, EVERY 0, 2, 6 WEEKS, THEN EVERY 6 WEEKS
     Route: 042
     Dates: start: 20181126
  24. MIDAZOLAM. [Concomitant]
     Active Substance: MIDAZOLAM
     Dosage: 5 MG, UNK
     Route: 042
  25. INFLECTRA [Suspect]
     Active Substance: INFLIXIMAB-DYYB
     Dosage: 800 MG, EVERY 0, 2, 6 WEEKS, THEN EVERY 6 WEEKS
     Route: 042
     Dates: start: 20180929
  26. INFLECTRA [Suspect]
     Active Substance: INFLIXIMAB-DYYB
     Dosage: 800 MG, EVERY 0, 2, 6 WEEKS, THEN EVERY 6 WEEKS
     Route: 042
     Dates: start: 20181221
  27. CORTIMENT [Concomitant]
     Dosage: UNK
     Dates: start: 201805, end: 201807
  28. PREDNISONE. [Concomitant]
     Active Substance: PREDNISONE
     Dosage: 40 MG, (DECREASE BY 5 MG PER WEEK )
     Dates: start: 201811, end: 201901

REACTIONS (9)
  - Haematochezia [Not Recovered/Not Resolved]
  - Weight decreased [Unknown]
  - Gastrointestinal tract irritation [Unknown]
  - Off label use [Unknown]
  - Drug ineffective [Not Recovered/Not Resolved]
  - C-reactive protein increased [Unknown]
  - Weight increased [Unknown]
  - Product use issue [Unknown]
  - Condition aggravated [Not Recovered/Not Resolved]

NARRATIVE: CASE EVENT DATE: 20190315
